FAERS Safety Report 11594630 (Version 1)
Quarter: 2015Q4

REPORT INFORMATION
  Report Type: Spontaneous
  Country: US (occurrence: US)
  Receive Date: 20151005
  Receipt Date: 20151005
  Transmission Date: 20160304
  Serious: No
  Sender: FDA-Public Use
  Company Number: US-APOTEX-2015AP010618

PATIENT
  Age: 16 Year
  Sex: Male

DRUGS (5)
  1. ESCITALOPRAM OXALATE. [Suspect]
     Active Substance: ESCITALOPRAM OXALATE
     Indication: MAJOR DEPRESSION
     Dosage: 10 MG/DAY
     Route: 065
  2. CEFALEXIN [Concomitant]
     Active Substance: CEPHALEXIN
     Indication: ACNE
     Route: 048
  3. PROPRANOLOL [Concomitant]
     Active Substance: PROPRANOLOL\PROPRANOLOL HYDROCHLORIDE
     Indication: DRUG THERAPY ENHANCEMENT
     Dosage: 30 MG, QD
     Route: 065
  4. CLONAZEPAM. [Concomitant]
     Active Substance: CLONAZEPAM
     Indication: DRUG THERAPY ENHANCEMENT
     Dosage: 0.25 MG, BID
     Route: 065
  5. CLONAZEPAM. [Concomitant]
     Active Substance: CLONAZEPAM
     Indication: ANXIETY

REACTIONS (1)
  - Activation syndrome [Recovering/Resolving]
